FAERS Safety Report 13181161 (Version 1)
Quarter: 2017Q1

REPORT INFORMATION
  Report Type: Spontaneous
  Country: US (occurrence: US)
  Receive Date: 20170202
  Receipt Date: 20170202
  Transmission Date: 20170428
  Serious: No
  Sender: FDA-Public Use
  Company Number: US-SMITH AND NEPHEW, INC-2016SMT00242

PATIENT
  Age: 65 Year
  Sex: Male
  Weight: 97.51 kg

DRUGS (19)
  1. PROGRAF [Concomitant]
     Active Substance: TACROLIMUS\TACROLIMUS ANHYDROUS
  2. ENALAPRIL [Concomitant]
     Active Substance: ENALAPRIL
  3. PLAVIX [Concomitant]
     Active Substance: CLOPIDOGREL BISULFATE
  4. DILTIAZEM. [Concomitant]
     Active Substance: DILTIAZEM
  5. WARFARIN [Concomitant]
     Active Substance: WARFARIN
  6. PREDNISONE. [Concomitant]
     Active Substance: PREDNISONE
  7. JANUMET [Concomitant]
     Active Substance: METFORMIN HYDROCHLORIDE\SITAGLIPTIN PHOSPHATE
  8. LYRICA [Concomitant]
     Active Substance: PREGABALIN
  9. TOPROL XL [Concomitant]
     Active Substance: METOPROLOL SUCCINATE
  10. DIGOXIN. [Concomitant]
     Active Substance: DIGOXIN
  11. METANX [Concomitant]
     Active Substance: LEVOMEFOLATE CALCIUM\METHYLCOBALAMIN\PYRIDOXAL PHOSPHATE ANHYDROUS
  12. NAC [Concomitant]
  13. CRESTOR [Concomitant]
     Active Substance: ROSUVASTATIN CALCIUM
  14. CELLCEPT [Concomitant]
     Active Substance: MYCOPHENOLATE MOFETIL\MYCOPHENOLATE MOFETIL HYDROCHLORIDE
  15. VITAMIN D [Concomitant]
     Active Substance: CHOLECALCIFEROL
  16. REGRANEX [Suspect]
     Active Substance: BECAPLERMIN
     Indication: DIABETIC FOOT
     Dosage: UNK, TWICE
     Route: 061
     Dates: start: 20160309, end: 20160310
  17. FOLIC ACID. [Concomitant]
     Active Substance: FOLIC ACID
  18. ZETIA [Concomitant]
     Active Substance: EZETIMIBE
  19. ASPIRIN. [Concomitant]
     Active Substance: ASPIRIN

REACTIONS (2)
  - Application site discolouration [Unknown]
  - Skin irritation [Unknown]

NARRATIVE: CASE EVENT DATE: 201603
